FAERS Safety Report 11603899 (Version 1)
Quarter: 2015Q4

REPORT INFORMATION
  Report Type: Spontaneous
  Country: TR (occurrence: TR)
  Receive Date: 20151007
  Receipt Date: 20151007
  Transmission Date: 20160304
  Serious: Yes (Death, Life-Threatening)
  Sender: FDA-Public Use
  Company Number: TR-FRESENIUS KABI-FK201504752

PATIENT
  Age: 78 Year
  Sex: Male

DRUGS (1)
  1. HEPARIN (MANUFACTURER UNKNOWN) [Suspect]
     Active Substance: HEPARIN SODIUM
     Indication: ACUTE CORONARY SYNDROME
     Route: 065

REACTIONS (4)
  - Atrial fibrillation [Unknown]
  - Heparin-induced thrombocytopenia [Unknown]
  - Death [Fatal]
  - Atrial thrombosis [Unknown]
